FAERS Safety Report 13594298 (Version 1)
Quarter: 2017Q2

REPORT INFORMATION
  Report Type: Report from Study
  Country: CA (occurrence: CA)
  Receive Date: 20170530
  Receipt Date: 20170530
  Transmission Date: 20170830
  Serious: Yes (Death, Hospitalization)
  Sender: FDA-Public Use
  Company Number: CA-ACTELION-A-US2017-154506

PATIENT
  Age: 86 Year
  Sex: Female

DRUGS (22)
  1. OPSUMIT [Suspect]
     Active Substance: MACITENTAN
     Indication: PULMONARY ARTERIAL HYPERTENSION
     Dosage: 10 MG, QD
     Route: 048
     Dates: start: 20160320, end: 20170428
  2. ZYLOPRIM [Concomitant]
     Active Substance: ALLOPURINOL
  3. SYNTHROID [Concomitant]
     Active Substance: LEVOTHYROXINE SODIUM
  4. ROSUVASTATIN. [Concomitant]
     Active Substance: ROSUVASTATIN
  5. HYDROMORPHONE [Concomitant]
     Active Substance: HYDROMORPHONE
  6. WARFARIN [Concomitant]
     Active Substance: WARFARIN
  7. PANTOPRAZOLE [Concomitant]
     Active Substance: PANTOPRAZOLE
  8. TRADJENTA [Concomitant]
     Active Substance: LINAGLIPTIN
  9. O2 [Concomitant]
  10. LORAZEPAM. [Concomitant]
     Active Substance: LORAZEPAM
  11. COENZYME Q10 [Concomitant]
     Active Substance: UBIDECARENONE
  12. GLIPIZIDE. [Concomitant]
     Active Substance: GLIPIZIDE
  13. INSULIN [Concomitant]
     Active Substance: INSULIN NOS
  14. OMEGA 3 [Concomitant]
     Active Substance: OMEGA-3 FATTY ACIDS
  15. ADCIRCA [Concomitant]
     Active Substance: TADALAFIL
  16. SPIRIVA [Concomitant]
     Active Substance: TIOTROPIUM BROMIDE MONOHYDRATE
  17. FUROSEMIDE. [Concomitant]
     Active Substance: FUROSEMIDE
  18. FOLIC ACID. [Concomitant]
     Active Substance: FOLIC ACID
  19. SLOW K [Concomitant]
     Active Substance: POTASSIUM CHLORIDE
  20. TYLENOL [Concomitant]
     Active Substance: ACETAMINOPHEN
  21. PAROXETINE. [Concomitant]
     Active Substance: PAROXETINE
  22. ZAROXOLYN [Concomitant]
     Active Substance: METOLAZONE

REACTIONS (1)
  - Respiratory failure [Fatal]

NARRATIVE: CASE EVENT DATE: 20170428
